FAERS Safety Report 25101960 (Version 1)
Quarter: 2025Q1

REPORT INFORMATION
  Report Type: Spontaneous
  Country: US (occurrence: US)
  Receive Date: 20250320
  Receipt Date: 20250320
  Transmission Date: 20250409
  Serious: Yes (Other)
  Sender: UCB
  Company Number: US-UCBSA-2025015953

PATIENT
  Age: 39 Year
  Sex: Female

DRUGS (2)
  1. CIMZIA [Suspect]
     Active Substance: CERTOLIZUMAB PEGOL
     Indication: Rheumatoid arthritis
     Dosage: 400 MILLIGRAM, EV 4 WEEKS
     Route: 058
     Dates: start: 202502
  2. FASENRA [Concomitant]
     Active Substance: BENRALIZUMAB
     Indication: Product used for unknown indication

REACTIONS (2)
  - Rheumatoid arthritis [Unknown]
  - Off label use [Unknown]

NARRATIVE: CASE EVENT DATE: 20250201
